FAERS Safety Report 6874210-8 (Version None)
Quarter: 2010Q3

REPORT INFORMATION
  Report Type: 
  Country: None (occurrence: None)
  Receive Date: 20100723
  Receipt Date: 20090611
  Transmission Date: 20110219
  Serious: No
  Sender: FDA-Public Use
  Company Number: US-PFIZER INC-2009203779

PATIENT
  Sex: Female
  Weight: 52.16 kg

DRUGS (17)
  1. CHANTIX [Suspect]
     Indication: SMOKING CESSATION THERAPY
     Dosage: 1 MG, 2X/DAY
     Route: 048
     Dates: start: 20090301, end: 20090501
  2. ACYCLOVIR [Concomitant]
     Indication: HERPES ZOSTER
     Dosage: 400 MG, 2X/DAY
     Dates: start: 20080806
  3. AMLODIPINE [Concomitant]
     Dosage: 5 MG DAILY
  4. ACETYLSALICYLIC ACID [Concomitant]
     Dosage: 325 MG DAILY
  5. BISOPROLOL [Concomitant]
     Dosage: UNK
  6. NEXIUM [Concomitant]
     Dosage: UNK
  7. ZETIA [Concomitant]
     Dosage: 10 MG DAILY
  8. FEXOFENADINE [Concomitant]
     Dosage: UNK
  9. FUROSEMIDE [Concomitant]
     Dosage: 40 MG DAILY
  10. HUMULIN 70/30 [Concomitant]
     Dosage: 15 MG, 2X/DAY
  11. LYSINE [Concomitant]
     Dosage: UNK
  12. OXYCONTIN [Concomitant]
     Indication: HERPES ZOSTER
     Dosage: UNK
  13. PRENATAL VITAMINS [Concomitant]
     Dosage: UNK
  14. QUINAPRIL [Concomitant]
     Dosage: 40 MG DAILY
  15. SPIRONOLACTONE [Concomitant]
     Dosage: 25 MG DAILY
  16. ZINC [Concomitant]
     Dosage: UNK
  17. GABAPENTIN [Concomitant]

REACTIONS (3)
  - ABNORMAL DREAMS [None]
  - MALAISE [None]
  - NAUSEA [None]
